FAERS Safety Report 5479793-0 (Version None)
Quarter: 2007Q4

REPORT INFORMATION
  Report Type: 
  Country: None (occurrence: None)
  Receive Date: 20071003
  Receipt Date: 20070921
  Transmission Date: 20080405
  Serious: Yes (Other)
  Sender: FDA-Public Use
  Company Number: US-CVT-070162

PATIENT
  Sex: 0

DRUGS (1)
  1. RANEXA [Suspect]

REACTIONS (1)
  - RENAL FAILURE [None]
